FAERS Safety Report 7978286-6 (Version None)
Quarter: 2011Q4

REPORT INFORMATION
  Report Type: 
  Country: None (occurrence: None)
  Receive Date: 20111214
  Receipt Date: 20111208
  Transmission Date: 20120403
  Serious: Yes (Hospitalization)
  Sender: FDA-Public Use
  Company Number: SE-PFIZER INC-2011299509

PATIENT
  Age: 20 Year
  Sex: Male

DRUGS (2)
  1. DOSTINEX [Suspect]
     Indication: CRANIOPHARYNGIOMA
  2. DOSTINEX [Suspect]
     Indication: MALIGNANT PITUITARY TUMOUR
     Dosage: UNK
     Dates: start: 20110801, end: 20111026

REACTIONS (1)
  - PLEURISY [None]
